FAERS Safety Report 13164862 (Version 1)
Quarter: 2017Q1

REPORT INFORMATION
  Report Type: Report from Study
  Country: None (occurrence: US)
  Receive Date: 20170130
  Receipt Date: 20170130
  Transmission Date: 20170428
  Serious: Yes (Other)
  Sender: FDA-Public Use
  Company Number: US-ABBVIE-17P-163-1853135-00

PATIENT
  Sex: Female

DRUGS (3)
  1. LUPRON DEPOT [Suspect]
     Active Substance: LEUPROLIDE ACETATE
     Indication: ENDOMETRIOSIS
     Route: 050
     Dates: start: 2010
  2. LUPRON DEPOT [Suspect]
     Active Substance: LEUPROLIDE ACETATE
     Indication: ENDOMETRIOSIS
     Dosage: ONCE
     Route: 050
     Dates: start: 201111
  3. WELLBUTRIN [Concomitant]
     Active Substance: BUPROPION HYDROCHLORIDE
     Indication: ANXIETY
     Route: 048
     Dates: start: 2005

REACTIONS (10)
  - Mood swings [Recovered/Resolved]
  - Mood swings [Not Recovered/Not Resolved]
  - Hysterectomy [Unknown]
  - Pelvic pain [Not Recovered/Not Resolved]
  - Weight increased [Recovered/Resolved]
  - Infertility [Not Recovered/Not Resolved]
  - Migraine [Recovered/Resolved]
  - Endometriosis [Unknown]
  - Generalised anxiety disorder [Not Recovered/Not Resolved]
  - Pelvic pain [Unknown]

NARRATIVE: CASE EVENT DATE: 2010
